FAERS Safety Report 9525404 (Version 1)
Quarter: 2013Q3

REPORT INFORMATION
  Report Type: Report from Study
  Country: US (occurrence: US)
  Receive Date: 20130916
  Receipt Date: 20130916
  Transmission Date: 20140515
  Serious: Yes (Death)
  Sender: FDA-Public Use
  Company Number: US-ROCHE-1276230

PATIENT
  Sex: Male

DRUGS (3)
  1. XELODA [Suspect]
     Indication: COLON CANCER
     Route: 048
     Dates: start: 20130708
  2. XARELTO [Concomitant]
     Route: 048
  3. DEXAMETHASONE [Concomitant]
     Route: 048

REACTIONS (1)
  - Death [Fatal]
